FAERS Safety Report 8530772-6 (Version None)
Quarter: 2012Q3

REPORT INFORMATION
  Report Type: 
  Country: None (occurrence: None)
  Receive Date: 20120723
  Receipt Date: 20120719
  Transmission Date: 20120928
  Serious: Yes (Hospitalization)
  Sender: FDA-Public Use
  Company Number: PHHY2012BA058181

PATIENT
  Age: 56 Year
  Sex: Female

DRUGS (4)
  1. CHLORPROMAZINE HCL [Concomitant]
     Dosage: 50 MG, UNK
  2. HALOPERIDOL [Concomitant]
     Dosage: 30 MG, DAILY
  3. HALOPERIDOL DECANOATE [Concomitant]
     Dosage: 50 MG / 21 DAY
  4. CLOZAPINE [Suspect]
     Dosage: 400 MG, UNK

REACTIONS (7)
  - CHEST PAIN [None]
  - OEDEMA PERIPHERAL [None]
  - PULMONARY EMBOLISM [None]
  - HALLUCINATION, AUDITORY [None]
  - SUICIDAL IDEATION [None]
  - DYSPNOEA [None]
  - INFARCTION [None]
